FAERS Safety Report 24425372 (Version 2)
Quarter: 2024Q4

REPORT INFORMATION
  Report Type: Spontaneous
  Country: ES (occurrence: ES)
  Receive Date: 20241011
  Receipt Date: 20241024
  Transmission Date: 20250115
  Serious: Yes (Other)
  Sender: SANDOZ
  Company Number: ES-002147023-PHHY2018ES053013

PATIENT
  Age: 27 Year
  Sex: Female

DRUGS (13)
  1. BASILIXIMAB [Suspect]
     Active Substance: BASILIXIMAB
     Indication: Immunosuppressant drug therapy
     Dosage: INDUCTION THERAPY
     Route: 065
  2. BASILIXIMAB [Suspect]
     Active Substance: BASILIXIMAB
     Indication: Immunosuppressant drug therapy
     Dosage: UNK
     Route: 065
  3. FOSCARNET [Suspect]
     Active Substance: FOSCARNET
     Indication: Cytomegalovirus infection
     Dosage: 70 MG/KG, UNK (FOR 15 DAYS)
     Route: 065
  4. GANCICLOVIR [Suspect]
     Active Substance: GANCICLOVIR
     Indication: Cytomegalovirus infection
     Dosage: 7.5 MG/KG, BID (FOR 9 DAYS)
     Route: 065
  5. MYCOPHENOLATE MOFETIL [Suspect]
     Active Substance: MYCOPHENOLATE MOFETIL
     Indication: Immunosuppressant drug therapy
     Dosage: UNK
     Route: 065
  6. MYCOPHENOLATE MOFETIL [Suspect]
     Active Substance: MYCOPHENOLATE MOFETIL
     Indication: Prophylaxis against transplant rejection
     Dosage: UNK
     Route: 065
  7. MYCOPHENOLATE MOFETIL [Suspect]
     Active Substance: MYCOPHENOLATE MOFETIL
     Indication: Renal transplant
     Dosage: UNK
     Route: 065
  8. TACROLIMUS [Suspect]
     Active Substance: TACROLIMUS
     Indication: Immunosuppressant drug therapy
     Dosage: UNK
     Route: 065
  9. TACROLIMUS [Suspect]
     Active Substance: TACROLIMUS
     Indication: Renal transplant
     Dosage: UNK
     Route: 065
  10. TACROLIMUS [Suspect]
     Active Substance: TACROLIMUS
     Route: 065
  11. VALGANCICLOVIR [Suspect]
     Active Substance: VALGANCICLOVIR
     Dosage: 1350 MG, BID
     Route: 065
  12. VALGANCICLOVIR [Suspect]
     Active Substance: VALGANCICLOVIR
     Indication: Cytomegalovirus infection
     Dosage: 1800 MILLIGRAM DAILY; FOR 55 DAYS
     Route: 065
  13. VALGANCICLOVIR HYDROCHLORIDE [Suspect]
     Active Substance: VALGANCICLOVIR HYDROCHLORIDE
     Indication: Neutropenia
     Dosage: 2700.000MG QD
     Route: 048

REACTIONS (8)
  - Pathogen resistance [Unknown]
  - Acute kidney injury [Recovered/Resolved]
  - Drug resistance [Unknown]
  - Neutropenia [Unknown]
  - Cytomegalovirus infection [Unknown]
  - Hypophosphataemia [Unknown]
  - Hypomagnesaemia [Unknown]
  - Cytomegalovirus gastrointestinal infection [Recovered/Resolved]
